FAERS Safety Report 13461464 (Version 1)
Quarter: 2017Q2

REPORT INFORMATION
  Report Type: Spontaneous
  Country: US (occurrence: US)
  Receive Date: 20170420
  Receipt Date: 20170420
  Transmission Date: 20170830
  Serious: No
  Sender: FDA-Public Use
  Company Number: US-009507513-1703USA010158

PATIENT
  Age: 18 Year
  Sex: Female
  Weight: 62.13 kg

DRUGS (2)
  1. NEXPLANON [Suspect]
     Active Substance: ETONOGESTREL
     Dosage: 1/EVERY 3 YEARS
     Route: 059
     Dates: start: 20170320
  2. NEXPLANON [Suspect]
     Active Substance: ETONOGESTREL
     Dosage: 1/EVERY 3 YEARS
     Route: 059
     Dates: start: 20170320, end: 20170320

REACTIONS (4)
  - Device expulsion [Recovered/Resolved]
  - Product quality issue [Unknown]
  - Complication of device insertion [Recovered/Resolved]
  - No adverse event [Unknown]

NARRATIVE: CASE EVENT DATE: 20170320
